FAERS Safety Report 6136167-7 (Version None)
Quarter: 2009Q1

REPORT INFORMATION
  Report Type: 
  Country: None (occurrence: None)
  Receive Date: 20090325
  Receipt Date: 20090308
  Transmission Date: 20090719
  Serious: Yes (Other)
  Sender: FDA-Public Use
  Company Number: 2007S1005791

PATIENT
  Age: 56 Year
  Sex: Female
  Weight: 46.7205 kg

DRUGS (5)
  1. PHOSPHOSODA FLAVOR NOT SPECIFIED [Suspect]
     Indication: SIGMOIDOSCOPY
     Dosage: PO
     Route: 048
     Dates: start: 20020102, end: 20020103
  2. MAXZIDE [Concomitant]
  3. LOPRESSOR [Concomitant]
  4. PREMARIL [Concomitant]
  5. ELAVIL [Concomitant]

REACTIONS (4)
  - HYPERTENSION [None]
  - NEPHROSCLEROSIS [None]
  - RENAL FAILURE CHRONIC [None]
  - RENAL INJURY [None]
